FAERS Safety Report 11093678 (Version 3)
Quarter: 2015Q3

REPORT INFORMATION
  Report Type: Spontaneous
  Country: PT (occurrence: PT)
  Receive Date: 20150506
  Receipt Date: 20150720
  Transmission Date: 20151125
  Serious: Yes (Hospitalization)
  Sender: FDA-Public Use
  Company Number: PT-MERZ NORTH AMERICA, INC.-15MRZ-00169

PATIENT
  Age: 29 Year
  Sex: Female
  Weight: 65.5 kg

DRUGS (10)
  1. CLOPIDOGREL [Concomitant]
     Active Substance: CLOPIDOGREL BISULFATE
     Dosage: 75 MG
     Route: 048
     Dates: end: 20150305
  2. GABAPENTIN. [Concomitant]
     Active Substance: GABAPENTIN
     Dosage: 600 MG
     Route: 048
     Dates: end: 20150305
  3. BOTULINUM TOXIN TYPE A [Concomitant]
     Active Substance: BOTULINUM TOXIN TYPE A
     Indication: MUSCLE SPASTICITY
     Dosage: REGULAR TREATMENTS SINCE 08 JAN 2013 FOR A TOTAL OF 7 TREATMENTS
     Dates: start: 20130108
  4. XEOMIN [Suspect]
     Active Substance: INCOBOTULINUMTOXINA
     Indication: MUSCLE SPASTICITY
     Dosage: 10 UNITS
     Route: 030
     Dates: start: 20150210, end: 20150210
  5. ACETAZOLAMIDE. [Concomitant]
     Active Substance: ACETAZOLAMIDE
     Dosage: 750 MG
     Route: 048
  6. VALPROIC ACID. [Concomitant]
     Active Substance: VALPROIC ACID
     Dosage: 1000 MG
     Route: 048
     Dates: end: 20150305
  7. IODINE WITH POTASSIUM [Concomitant]
     Dosage: 0.2 MG
     Route: 048
     Dates: start: 20150305
  8. LEVETIRACETAM. [Concomitant]
     Active Substance: LEVETIRACETAM
     Dosage: 500 MG
     Route: 048
     Dates: start: 20150305
  9. ACETYLSALICYLIC ACID [Concomitant]
     Active Substance: ASPIRIN
     Dosage: 100 MG
     Route: 048
     Dates: start: 20150305
  10. FOLIFER [Concomitant]
     Dosage: 1 PLUS 90 MG
     Route: 048
     Dates: start: 20150305

REACTIONS (3)
  - Ischaemic stroke [Unknown]
  - Exposure during pregnancy [Recovered/Resolved]
  - Hemiparesis [Recovering/Resolving]

NARRATIVE: CASE EVENT DATE: 20150210
